FAERS Safety Report 14775059 (Version 2)
Quarter: 2018Q2

REPORT INFORMATION
  Report Type: Spontaneous
  Country: JP (occurrence: JP)
  Receive Date: 20180418
  Receipt Date: 20180529
  Transmission Date: 20180711
  Serious: Yes (Other)
  Sender: FDA-Public Use
  Company Number: JP-ELI_LILLY_AND_COMPANY-JP201804007741

PATIENT
  Age: 77 Year
  Sex: Male
  Weight: 73 kg

DRUGS (24)
  1. PRASUGREL HYDROCHLORIDE [Suspect]
     Active Substance: PRASUGREL HYDROCHLORIDE
     Indication: PRODUCT USED FOR UNKNOWN INDICATION
     Dosage: 3.75 MG, DAILY
     Route: 048
     Dates: end: 20170706
  2. AZOSEMIDE [Concomitant]
     Active Substance: AZOSEMIDE
     Dosage: 60 MG, DAILY
     Route: 048
     Dates: start: 20170615, end: 20170628
  3. OLMETEC [Concomitant]
     Active Substance: OLMESARTAN MEDOXOMIL
     Dosage: 40 MG, DAILY
     Route: 048
  4. MAINTATE [Concomitant]
     Active Substance: BISOPROLOL FUMARATE
     Dosage: 2.5 MG, DAILY
     Route: 048
  5. ALPROSTADIL. [Concomitant]
     Active Substance: ALPROSTADIL
     Dosage: 10 UG, DAILY
     Route: 042
     Dates: start: 20170529, end: 20170708
  6. OMEPRAZOLE. [Concomitant]
     Active Substance: OMEPRAZOLE
     Dosage: 40 MG, DAILY
     Route: 048
     Dates: start: 20170608, end: 20170615
  7. TRAMCET [Concomitant]
     Active Substance: ACETAMINOPHEN\TRAMADOL
     Dosage: 2 DF, DAILY
     Route: 048
     Dates: start: 20170614
  8. ZOLPIDEM TARTRATE. [Concomitant]
     Active Substance: ZOLPIDEM TARTRATE
     Dosage: 5 MG, DAILY
     Route: 048
     Dates: start: 20170724
  9. BAYASPIRIN [Suspect]
     Active Substance: ASPIRIN
     Indication: PRODUCT USED FOR UNKNOWN INDICATION
     Dosage: 100 MG, DAILY
     Route: 048
     Dates: start: 20170707
  10. LYRICA [Concomitant]
     Active Substance: PREGABALIN
     Dosage: 25 MG, DAILY
     Route: 048
     Dates: end: 20170621
  11. ADALAT [Concomitant]
     Active Substance: NIFEDIPINE
     Dosage: 40 MG, DAILY
     Route: 048
     Dates: end: 20170707
  12. SODIUM RABEPRAZOLE [Concomitant]
     Active Substance: RABEPRAZOLE SODIUM
     Dosage: 100 MG, DAILY
     Route: 048
     Dates: start: 20170608
  13. EDOXABAN TOSILATE [Suspect]
     Active Substance: EDOXABAN TOSYLATE
     Indication: ATRIAL FIBRILLATION
     Dosage: 30 MG, DAILY
     Route: 048
     Dates: start: 20170615
  14. AZOSEMIDE [Concomitant]
     Active Substance: AZOSEMIDE
     Dosage: 30 MG, DAILY
     Route: 048
     Dates: end: 20170615
  15. VANARL N [Concomitant]
     Dosage: 300 MG, DAILY
     Route: 048
     Dates: start: 20170615
  16. NOVORAPID [Concomitant]
     Active Substance: INSULIN ASPART
     Dosage: 2 IU, DAILY
     Route: 058
     Dates: start: 20170701, end: 20170701
  17. CRESTOR [Concomitant]
     Active Substance: ROSUVASTATIN CALCIUM
     Dosage: 2.5 MG, DAILY
     Route: 048
  18. NOVORAPID [Concomitant]
     Active Substance: INSULIN ASPART
     Dosage: 4 IU, DAILY
     Route: 058
     Dates: start: 20170625, end: 20170625
  19. NOVAMIN                            /00013304/ [Concomitant]
     Active Substance: PROCHLORPERAZINE MALEATE
     Dosage: 15 MG, DAILY
     Route: 048
     Dates: start: 20170705
  20. SARPOGRELATE                       /01279802/ [Suspect]
     Active Substance: SARPOGRELATE
     Indication: PRODUCT USED FOR UNKNOWN INDICATION
     Dosage: 200 MG, DAILY
     Route: 048
     Dates: end: 20170615
  21. CILOSTAZOL. [Suspect]
     Active Substance: CILOSTAZOL
     Indication: PRODUCT USED FOR UNKNOWN INDICATION
     Dosage: 200 MG, DAILY
     Route: 048
     Dates: start: 20170615
  22. EQUA [Concomitant]
     Active Substance: VILDAGLIPTIN
     Dosage: 100 MG, DAILY
     Route: 048
  23. TRANSAMIN [Concomitant]
     Active Substance: TRANEXAMIC ACID
     Dosage: 10 ML, DAILY
     Route: 042
     Dates: start: 20170609, end: 20170615
  24. PRORNER [Concomitant]
     Active Substance: BERAPROST SODIUM
     Dosage: 120 UG, DAILY
     Route: 048
     Dates: start: 20170615, end: 20170720

REACTIONS (6)
  - Creatinine renal clearance decreased [Unknown]
  - Fibrin D dimer increased [Unknown]
  - Lacunar infarction [Recovered/Resolved]
  - Blood alkaline phosphatase increased [Unknown]
  - Blood creatinine increased [Unknown]
  - Cerebral haemorrhage [Recovered/Resolved]

NARRATIVE: CASE EVENT DATE: 20170609
